FAERS Safety Report 8100284-2 (Version None)
Quarter: 2012Q1

REPORT INFORMATION
  Report Type: 
  Country: None (occurrence: None)
  Receive Date: 20120129
  Receipt Date: 20111122
  Transmission Date: 20120608
  Serious: Yes (Other)
  Sender: FDA-Public Use
  Company Number: US-ABBOTT-11P-163-0877562-00

PATIENT
  Sex: Female
  Weight: 98.972 kg

DRUGS (5)
  1. INSULIN [Concomitant]
     Indication: DIABETES MELLITUS
  2. HUMIRA [Suspect]
  3. HUMIRA [Suspect]
     Indication: RHEUMATOID ARTHRITIS
     Route: 058
     Dates: start: 20030101
  4. COREG [Concomitant]
     Indication: PRODUCT USED FOR UNKNOWN INDICATION
  5. HYZAAR [Concomitant]
     Indication: HYPERTENSION

REACTIONS (2)
  - RHEUMATOID ARTHRITIS [None]
  - MYOCARDIAL INFARCTION [None]
